FAERS Safety Report 8018474-6 (Version None)
Quarter: 2012Q1

REPORT INFORMATION
  Report Type: 
  Country: None (occurrence: None)
  Receive Date: 20120103
  Receipt Date: 20111223
  Transmission Date: 20120608
  Serious: Yes (Other)
  Sender: FDA-Public Use
  Company Number: US-ASTELLAS-2011US008110

PATIENT
  Sex: Male
  Weight: 65 kg

DRUGS (4)
  1. WARFARIN SODIUM [Concomitant]
     Indication: ANTICOAGULANT THERAPY
     Dosage: UNK
     Route: 065
  2. PROGRAF [Suspect]
     Indication: LIVER TRANSPLANT
     Dosage: 3 MG, BID
     Route: 048
     Dates: start: 20101226
  3. PREDNISONE TAB [Concomitant]
     Indication: LIVER TRANSPLANT
     Dosage: 5 MG, UID/QD
     Route: 048
  4. MYCOPHENOLATE MOFETIL (CELLCEPT) [Concomitant]
     Indication: LIVER TRANSPLANT
     Dosage: 250 MG, BID
     Route: 048
     Dates: start: 20101226

REACTIONS (1)
  - LIVER TRANSPLANT [None]
